FAERS Safety Report 13952373 (Version 1)
Quarter: 2017Q3

REPORT INFORMATION
  Report Type: Spontaneous
  Country: US (occurrence: US)
  Receive Date: 20170911
  Receipt Date: 20170911
  Transmission Date: 20171128
  Serious: Yes (Hospitalization)
  Sender: FDA-Public Use
  Company Number: US-TEVA-719631USA

PATIENT
  Sex: Female

DRUGS (1)
  1. FENTANYL. [Suspect]
     Active Substance: FENTANYL
     Indication: PRODUCT USED FOR UNKNOWN INDICATION
     Dosage: FIVE PATCHES EVERY TWO DAYS
     Route: 062
     Dates: start: 2014

REACTIONS (3)
  - Overdose [Unknown]
  - Drug diversion [Unknown]
  - Product quality issue [Unknown]

NARRATIVE: CASE EVENT DATE: 20161111
